FAERS Safety Report 16720581 (Version 1)
Quarter: 2019Q3

REPORT INFORMATION
  Report Type: Spontaneous
  Country: US (occurrence: US)
  Receive Date: 20190703
  Receipt Date: 20190703
  Transmission Date: 20191005
  Serious: Yes (Hospitalization)
  Sender: FDA-Public Use
  Company Number: None

PATIENT
  Age: 64 Year
  Sex: Male

DRUGS (10)
  1. NOXAFIL [Suspect]
     Active Substance: POSACONAZOLE
     Indication: PNEUMONIA
     Route: 048
  2. POATSSIUM [Concomitant]
  3. CYCLOSPORINE. [Concomitant]
     Active Substance: CYCLOSPORINE
  4. GN [Concomitant]
  5. LEVOTHYROXINE. [Concomitant]
     Active Substance: LEVOTHYROXINE
  6. VALGANCICLOVIR. [Concomitant]
     Active Substance: VALGANCICLOVIR
  7. LISINOPRIL. [Concomitant]
     Active Substance: LISINOPRIL
  8. FAMOTIDINE. [Concomitant]
     Active Substance: FAMOTIDINE
  9. PREDNISONE. [Concomitant]
     Active Substance: PREDNISONE
  10. LEVOTHYROXINE. [Concomitant]
     Active Substance: LEVOTHYROXINE

REACTIONS (1)
  - Pneumonia [None]
